FAERS Safety Report 21860204 (Version 1)
Quarter: 2023Q1

REPORT INFORMATION
  Report Type: Spontaneous
  Country: US (occurrence: None)
  Receive Date: 20230113
  Receipt Date: 20230113
  Transmission Date: 20230417
  Serious: Yes (Hospitalization)
  Sender: FDA-Public Use
  Company Number: None

PATIENT
  Age: 83 Year
  Sex: Male

DRUGS (3)
  1. PROTAMINE SULFATE [Suspect]
     Active Substance: PROTAMINE SULFATE
     Indication: Cardiac operation
     Dosage: FREQUENCY : ONCE;?
     Route: 042
     Dates: start: 20221021, end: 20221021
  2. PROTAMINE SULFATE [Suspect]
     Active Substance: PROTAMINE SULFATE
     Indication: Vascular operation
  3. DEXMEDETOMIDINE [Suspect]
     Active Substance: DEXMEDETOMIDINE
     Indication: Sedation
     Dosage: OTHER STRENGTH : 4MCG/ML/0.9%, 50ML;?OTHER FREQUENCY : SLIDING SCALE;?
     Route: 042
     Dates: start: 20221021, end: 20221021

REACTIONS (1)
  - Hypotension [None]

NARRATIVE: CASE EVENT DATE: 20221021
